FAERS Safety Report 6019576-6 (Version None)
Quarter: 2008Q4

REPORT INFORMATION
  Report Type: 
  Country: None (occurrence: None)
  Receive Date: 20081224
  Receipt Date: 20081216
  Transmission Date: 20090506
  Serious: Yes (Hospitalization, Other)
  Sender: FDA-Public Use
  Company Number: PHHY2008FR32670

PATIENT
  Sex: Female

DRUGS (1)
  1. EXELON [Suspect]
     Indication: DEMENTIA ALZHEIMER'S TYPE
     Dosage: 4.6 MG/ DAY
     Route: 062

REACTIONS (6)
  - ANAEMIA [None]
  - DERMATITIS EXFOLIATIVE [None]
  - EOSINOPHIL COUNT INCREASED [None]
  - FOLATE DEFICIENCY [None]
  - RENAL FAILURE ACUTE [None]
  - SKIN EXFOLIATION [None]
